FAERS Safety Report 22624919 (Version 1)
Quarter: 2023Q2

REPORT INFORMATION
  Report Type: Spontaneous
  Country: US (occurrence: None)
  Receive Date: 20230616
  Receipt Date: 20230616
  Transmission Date: 20230721
  Serious: No
  Sender: FDA-Public Use
  Company Number: None

PATIENT
  Sex: Female

DRUGS (1)
  1. STELARA [Suspect]
     Active Substance: USTEKINUMAB
     Indication: Proctitis ulcerative
     Dosage: 90 MG  EVERY 6 WEEKS SUBCUTANEOUSLY?
     Route: 058
     Dates: start: 202210

REACTIONS (3)
  - Drug ineffective [None]
  - Therapy change [None]
  - Proctitis ulcerative [None]
